FAERS Safety Report 9611273 (Version 1)
Quarter: 2013Q4

REPORT INFORMATION
  Report Type: Spontaneous
  Country: US (occurrence: US)
  Receive Date: 20131010
  Receipt Date: 20131010
  Transmission Date: 20140711
  Serious: No
  Sender: FDA-Public Use
  Company Number: US-009507513-1310USA002697

PATIENT
  Age: 38 Year
  Sex: Female

DRUGS (1)
  1. NEXPLANON [Suspect]
     Indication: CONTRACEPTION
     Dosage: UNK
     Route: 059
     Dates: start: 20130731, end: 20130904

REACTIONS (4)
  - Dyspnoea [Unknown]
  - Nausea [Unknown]
  - Pain [Unknown]
  - Pain [Unknown]
